FAERS Safety Report 19905676 (Version 2)
Quarter: 2023Q4

REPORT INFORMATION
  Report Type: Report from Study
  Country: CA (occurrence: CA)
  Receive Date: 20211001
  Receipt Date: 20231221
  Transmission Date: 20240110
  Serious: Yes (Other)
  Sender: FDA-Public Use
  Company Number: CA-TAKEDA-2021TUS059245

PATIENT
  Age: 55 Year
  Sex: Male

DRUGS (11)
  1. TEDUGLUTIDE [Suspect]
     Active Substance: TEDUGLUTIDE
     Indication: Short-bowel syndrome
     Dosage: 4.8 MILLIGRAM, QD
     Route: 042
     Dates: start: 20161209, end: 20210719
  2. TEDUGLUTIDE [Suspect]
     Active Substance: TEDUGLUTIDE
     Indication: Short-bowel syndrome
     Dosage: 4.8 MILLIGRAM, QD
     Route: 042
     Dates: start: 20161209, end: 20210719
  3. TEDUGLUTIDE [Suspect]
     Active Substance: TEDUGLUTIDE
     Indication: Short-bowel syndrome
     Dosage: 4.8 MILLIGRAM, QD
     Route: 042
     Dates: start: 20161209, end: 20210719
  4. TEDUGLUTIDE [Suspect]
     Active Substance: TEDUGLUTIDE
     Indication: Short-bowel syndrome
     Dosage: 4.8 MILLIGRAM, QD
     Route: 042
     Dates: start: 20161209, end: 20210719
  5. RISEDRONATE SODIUM [Concomitant]
     Active Substance: RISEDRONATE SODIUM
     Indication: Osteoporosis
     Dosage: 35 MILLIGRAM, 1/WEEK
     Route: 048
  6. VITAMIN B12 [Concomitant]
     Active Substance: CYANOCOBALAMIN
     Indication: Vitamin B12 deficiency
     Dosage: 1000 MICROGRAM, MONTHLY
     Route: 030
  7. VIOKASE [Concomitant]
     Active Substance: PANCRELIPASE
     Indication: Malabsorption
     Dosage: UNK UNK, TID
     Route: 048
  8. VITAMINS [Concomitant]
     Active Substance: VITAMINS
     Indication: Malabsorption
     Dosage: UNK UNK, QD
     Route: 048
  9. VITAMINS [Concomitant]
     Active Substance: VITAMINS
     Indication: Hypovitaminosis
  10. ENTRESTO [Concomitant]
     Active Substance: SACUBITRIL\VALSARTAN
     Indication: Cardiac failure
     Dosage: 24 MILLIGRAM, BID
     Route: 048
     Dates: start: 202104, end: 20210924
  11. ENTRESTO [Concomitant]
     Active Substance: SACUBITRIL\VALSARTAN
     Dosage: 49 MILLIGRAM, BID
     Route: 048
     Dates: start: 20210924

REACTIONS (1)
  - Lymphoplasmacytoid lymphoma/immunocytoma [Not Recovered/Not Resolved]

NARRATIVE: CASE EVENT DATE: 20210617
